FAERS Safety Report 13075057 (Version 1)
Quarter: 2016Q4

REPORT INFORMATION
  Report Type: Spontaneous
  Country: GB (occurrence: GB)
  Receive Date: 20161230
  Receipt Date: 20161230
  Transmission Date: 20170207
  Serious: Yes (Other)
  Sender: FDA-Public Use
  Company Number: GB-TEVA-723724ACC

PATIENT
  Age: 79 Year
  Sex: Female
  Weight: 65.5 kg

DRUGS (2)
  1. CLARITHROMYCIN. [Interacting]
     Active Substance: CLARITHROMYCIN
     Indication: ABDOMINAL INFECTION
     Route: 048
     Dates: start: 20161122, end: 20161129
  2. TACROLIMUS. [Suspect]
     Active Substance: TACROLIMUS
     Indication: RENAL TRANSPLANT
     Dosage: WITHHELD ON ADMISSION UNTIL LEVELS ACCEPTABLE.

REACTIONS (4)
  - Immunosuppressant drug level increased [Recovering/Resolving]
  - Malaise [Unknown]
  - Acute kidney injury [Recovering/Resolving]
  - Labelled drug-drug interaction medication error [Unknown]
